FAERS Safety Report 13283806 (Version 1)
Quarter: 2017Q1

REPORT INFORMATION
  Report Type: Spontaneous
  Country: US (occurrence: US)
  Receive Date: 20170301
  Receipt Date: 20170301
  Transmission Date: 20170428
  Serious: No
  Sender: FDA-Public Use
  Company Number: US-INSYS THERAPEUTICS, INC-INS201602-000064

PATIENT
  Sex: Female

DRUGS (1)
  1. SUBSYS [Suspect]
     Active Substance: FENTANYL
     Indication: BREAKTHROUGH PAIN
     Route: 058
     Dates: start: 20150814

REACTIONS (2)
  - Dry mouth [Not Recovered/Not Resolved]
  - Pollakiuria [Not Recovered/Not Resolved]
